FAERS Safety Report 8209067-6 (Version None)
Quarter: 2012Q1

REPORT INFORMATION
  Report Type: 
  Country: None (occurrence: None)
  Receive Date: 20120314
  Receipt Date: 20120308
  Transmission Date: 20120608
  Serious: Yes (Hospitalization)
  Sender: FDA-Public Use
  Company Number: JP-NOVOPROD-345428

PATIENT
  Age: 55 Year
  Sex: Male
  Weight: 120 kg

DRUGS (9)
  1. MELBIN                             /00082702/ [Concomitant]
     Dosage: 1500 MG, QD
     Route: 048
     Dates: start: 20101001, end: 20120209
  2. AMARYL [Concomitant]
     Dosage: 3 MG, QD
     Route: 048
     Dates: start: 20101001, end: 20120209
  3. ACTOS [Concomitant]
     Dosage: 15 MG, QD
     Route: 048
     Dates: start: 20101122, end: 20120209
  4. JANUVIA [Concomitant]
  5. VICTOZA [Suspect]
     Dosage: 0.6 MG, QD
     Route: 058
     Dates: start: 20110516
  6. VICTOZA [Suspect]
     Indication: TYPE 2 DIABETES MELLITUS
     Dosage: UNK
     Route: 065
     Dates: start: 20100828, end: 20101122
  7. VICTOZA [Suspect]
     Dosage: 0.3 MG, QD
     Route: 058
     Dates: start: 20110511
  8. VICTOZA [Suspect]
     Dosage: 0.9 MG, QD
     Route: 058
     Dates: start: 20110526, end: 20120209
  9. BASEN [Concomitant]
     Dosage: 0.9 MG, QD
     Route: 048
     Dates: start: 20101122, end: 20120209

REACTIONS (1)
  - MECHANICAL ILEUS [None]
